FAERS Safety Report 13602937 (Version 1)
Quarter: 2017Q2

REPORT INFORMATION
  Report Type: Spontaneous
  Country: US (occurrence: US)
  Receive Date: 20170601
  Receipt Date: 20170601
  Transmission Date: 20170830
  Serious: No
  Sender: FDA-Public Use
  Company Number: US-ARBOR PHARMACEUTICALS, LLC-US-2016ARB000694

PATIENT

DRUGS (1)
  1. HORIZANT [Suspect]
     Active Substance: GABAPENTIN ENACARBIL
     Indication: MIGRAINE
     Dosage: 600 MG, QD
     Route: 048
     Dates: start: 20160225, end: 20160407

REACTIONS (3)
  - Mood swings [Recovered/Resolved]
  - Constipation [Recovered/Resolved]
  - Off label use [Unknown]
